FAERS Safety Report 11814516 (Version 1)
Quarter: 2015Q4

REPORT INFORMATION
  Report Type: Spontaneous
  Country: US (occurrence: None)
  Receive Date: 20151208
  Receipt Date: 20151208
  Transmission Date: 20160305
  Serious: No
  Sender: FDA-Public Use
  Company Number: None

PATIENT
  Age: 31 Year
  Sex: Female
  Weight: 55.34 kg

DRUGS (4)
  1. ZOMETA [Concomitant]
     Active Substance: ZOLEDRONIC ACID
  2. EXEMESTANE. [Suspect]
     Active Substance: EXEMESTANE
     Indication: BREAST CANCER
     Route: 048
     Dates: start: 20150803, end: 20151207
  3. LIALDA [Concomitant]
     Active Substance: MESALAMINE
  4. ZOLADEX [Concomitant]
     Active Substance: GOSERELIN ACETATE

REACTIONS (4)
  - Headache [None]
  - Night sweats [None]
  - Hot flush [None]
  - Back pain [None]

NARRATIVE: CASE EVENT DATE: 20151201
